FAERS Safety Report 24080200 (Version 1)
Quarter: 2024Q3

REPORT INFORMATION
  Report Type: Spontaneous
  Country: US (occurrence: None)
  Receive Date: 20240711
  Receipt Date: 20240711
  Transmission Date: 20241016
  Serious: Yes (Death)
  Sender: Public
  Company Number: None

PATIENT
  Sex: Female

DRUGS (11)
  1. LENALIDOMIDE [Suspect]
     Active Substance: LENALIDOMIDE
     Indication: Plasma cell myeloma
     Dosage: OTHER FREQUENCY : DAILYFOR21DAYS;?
     Route: 048
     Dates: start: 20230913
  2. ACYCLOVIR [Concomitant]
     Active Substance: ACYCLOVIR
  3. AMMONIUM LAC CRE [Concomitant]
  4. ASPIRIN [Concomitant]
     Active Substance: ASPIRIN
  5. ASPIRIN LOW CHW [Concomitant]
  6. AZELASTINE SPR [Concomitant]
  7. AZITHROMYCIN [Concomitant]
     Active Substance: AZITHROMYCIN
  8. BUDESONIDE SUS [Concomitant]
  9. CHLORTHALID [Concomitant]
  10. CLONIDINE [Concomitant]
     Active Substance: CLONIDINE
  11. DEXAMETHASONE [Concomitant]
     Active Substance: DEXAMETHASONE

REACTIONS (1)
  - Death [None]
